FAERS Safety Report 10072908 (Version 2)
Quarter: 2014Q2

REPORT INFORMATION
  Report Type: Spontaneous
  Country: US (occurrence: US)
  Receive Date: 20140411
  Receipt Date: 20140502
  Transmission Date: 20141212
  Serious: Yes (Hospitalization, Other)
  Sender: FDA-Public Use
  Company Number: US-BAXTER-2014BAX018001

PATIENT
  Sex: Male

DRUGS (4)
  1. DIANEAL LOW CALCIUM [Suspect]
     Indication: PERITONEAL DIALYSIS
     Route: 033
     Dates: start: 201301, end: 20140408
  2. DIANEAL LOW CALCIUM [Suspect]
     Route: 033
     Dates: start: 20140411
  3. DIANEAL LOW CALCIUM [Suspect]
     Indication: PERITONEAL DIALYSIS
     Route: 033
     Dates: start: 201301, end: 20140408
  4. DIANEAL LOW CALCIUM [Suspect]
     Route: 033
     Dates: start: 20140411

REACTIONS (3)
  - Chest pain [Recovered/Resolved]
  - Myocardial necrosis marker increased [Unknown]
  - Abdominal discomfort [Unknown]
